FAERS Safety Report 7250522-3 (Version None)
Quarter: 2011Q1

REPORT INFORMATION
  Report Type: 
  Country: None (occurrence: None)
  Receive Date: 20110121
  Receipt Date: 20110121
  Transmission Date: 20110831
  Serious: Yes (Hospitalization)
  Sender: FDA-Public Use
  Company Number: None

PATIENT
  Age: 36 Year
  Sex: Female
  Weight: 142.4295 kg

DRUGS (1)
  1. HYDROXYZINE PAMOATE [Suspect]
     Indication: ANXIETY
     Dosage: 50MG. CAPSULES 4 TIMES A DAY PO
     Route: 048
     Dates: start: 20100119, end: 20110104

REACTIONS (3)
  - VERTIGO [None]
  - CONVULSION [None]
  - HEADACHE [None]
